FAERS Safety Report 8367968-2 (Version None)
Quarter: 2012Q2

REPORT INFORMATION
  Report Type: 
  Country: None (occurrence: None)
  Receive Date: 20120516
  Receipt Date: 20120430
  Transmission Date: 20120825
  Serious: Yes (Other)
  Sender: FDA-Public Use
  Company Number: 2012P1018456

PATIENT
  Age: 9 Year
  Sex: Female
  Weight: 31.7518 kg

DRUGS (1)
  1. LORATADINE [Suspect]
     Indication: TOURETTE'S DISORDER
     Dosage: 10 MG;X1;PO
     Route: 048
     Dates: start: 20120426, end: 20120426

REACTIONS (3)
  - DIZZINESS [None]
  - REACTION TO DRUG EXCIPIENTS [None]
  - POOR QUALITY SLEEP [None]
